FAERS Safety Report 5393897-2 (Version None)
Quarter: 2007Q3

REPORT INFORMATION
  Report Type: 
  Country: None (occurrence: None)
  Receive Date: 20070723
  Receipt Date: 20070713
  Transmission Date: 20080115
  Serious: Yes (Congenital Anomaly)
  Sender: FDA-Public Use
  Company Number: GB-AVENTIS-200716535GDDC

PATIENT

DRUGS (4)
  1. INSULIN GLARGINE [Suspect]
     Dosage: DOSE: UNK
     Route: 064
  2. HUMALOG [Suspect]
     Dosage: DOSE: UNK
     Route: 064
  3. FOLIC ACID [Concomitant]
     Dosage: DOSE: UNK
  4. LEVOTHYROXINE SODIUM [Concomitant]
     Dosage: DOSE: UNK

REACTIONS (2)
  - LUNG DISORDER [None]
  - RENAL DYSPLASIA [None]
